FAERS Safety Report 12759246 (Version 3)
Quarter: 2017Q4

REPORT INFORMATION
  Report Type: Report from Study
  Country: US (occurrence: US)
  Receive Date: 20160919
  Receipt Date: 20171109
  Transmission Date: 20180320
  Serious: Yes (Death, Hospitalization)
  Sender: FDA-Public Use
  Company Number: US-ACTELION-A-US2016-142173

PATIENT
  Age: 68 Year
  Sex: Female

DRUGS (16)
  1. GABAPENTIN. [Concomitant]
     Active Substance: GABAPENTIN
  2. UPTRAVI [Suspect]
     Active Substance: SELEXIPAG
     Dosage: UNK MCG, UNK
     Route: 048
     Dates: start: 20160609
  3. UPTRAVI [Suspect]
     Active Substance: SELEXIPAG
     Dosage: 1200 MCG, BID
     Route: 048
  4. FERROUS SULFATE. [Concomitant]
     Active Substance: FERROUS SULFATE
  5. ELIQUIS [Concomitant]
     Active Substance: APIXABAN
  6. OMEPRAZOLE. [Concomitant]
     Active Substance: OMEPRAZOLE
  7. UPTRAVI [Suspect]
     Active Substance: SELEXIPAG
     Indication: PULMONARY ARTERIAL HYPERTENSION
     Dosage: 1000 MCG, BID
     Route: 048
     Dates: start: 20160615, end: 20170824
  8. FENOFIBRATE. [Concomitant]
     Active Substance: FENOFIBRATE
  9. NORVASC [Concomitant]
     Active Substance: AMLODIPINE BESYLATE
  10. ASPIRIN. [Concomitant]
     Active Substance: ASPIRIN
  11. PRAVASTATIN SODIUM. [Concomitant]
     Active Substance: PRAVASTATIN SODIUM
  12. KLOR-CON [Concomitant]
     Active Substance: POTASSIUM CHLORIDE
  13. OXYCODONE AND ACETAMINOPHEN [Concomitant]
     Active Substance: ACETAMINOPHEN\OXYCODONE HYDROCHLORIDE
  14. GLIPIZIDE. [Concomitant]
     Active Substance: GLIPIZIDE
  15. SILDENAFIL. [Concomitant]
     Active Substance: SILDENAFIL
     Indication: PULMONARY ARTERIAL HYPERTENSION
  16. DIGOXIN. [Concomitant]
     Active Substance: DIGOXIN

REACTIONS (8)
  - Pulmonary hypertension [Fatal]
  - Fall [Fatal]
  - Renal impairment [Unknown]
  - Dyspnoea [Unknown]
  - Disease progression [Fatal]
  - Nephrolithiasis [Unknown]
  - Haemodynamic instability [Unknown]
  - Respiratory disorder [Unknown]

NARRATIVE: CASE EVENT DATE: 20170727
